FAERS Safety Report 7892959-5 (Version None)
Quarter: 2011Q4

REPORT INFORMATION
  Report Type: 
  Country: None (occurrence: None)
  Receive Date: 20111104
  Receipt Date: 20111028
  Transmission Date: 20120403
  Serious: Yes (Life-Threatening, Hospitalization, Other)
  Sender: FDA-Public Use
  Company Number: JP-PFIZER INC-2011008168

PATIENT
  Age: 89 Year
  Sex: Male
  Weight: 48 kg

DRUGS (17)
  1. ADALAT [Concomitant]
  2. ALDACTONE [Concomitant]
     Indication: CARDIAC FAILURE
     Dosage: UNK
     Dates: start: 20101126
  3. MAGNESIUM OXIDE [Concomitant]
     Indication: CONSTIPATION
     Dosage: 250 MG, 2X/DAY
     Route: 048
     Dates: start: 20101111
  4. VFEND [Suspect]
     Dosage: 200 MG, 2X/DAY
     Route: 048
     Dates: start: 20101124, end: 20101213
  5. AMBISOME [Concomitant]
     Indication: SINUSITIS FUNGAL
     Dosage: 250 MG, 1X/DAY
     Route: 042
     Dates: start: 20101112, end: 20101122
  6. AMLODIPINE [Concomitant]
     Indication: HYPERTENSION
     Dosage: 2.5 MG, 2X/DAY
     Route: 048
     Dates: start: 20101111
  7. AMARYL [Concomitant]
     Indication: DIABETES MELLITUS
     Dosage: 1 MG, 2X/DAY
     Route: 048
     Dates: start: 20101111
  8. PURSENNID [Concomitant]
     Indication: CONSTIPATION
     Dosage: 24 MG, 1X/DAY
     Route: 048
     Dates: start: 20101111
  9. LASIX [Concomitant]
     Indication: CARDIAC FAILURE
     Dosage: 10MG 2X/DAY
     Dates: start: 20101126
  10. VFEND [Suspect]
     Indication: SINUSITIS FUNGAL
     Dosage: 400 MG, 2X/DAY
     Route: 048
     Dates: start: 20101123, end: 20101123
  11. CARVEDILOL [Concomitant]
     Dosage: 10 MG, UNK
  12. SIGMART [Concomitant]
     Indication: HYPERTENSION
     Dosage: 5 MG, 2X/DAY
     Route: 048
     Dates: start: 20101111
  13. PRIMPERAN TAB [Concomitant]
     Indication: GASTRITIS
     Dosage: 5 MG, 2X/DAY
     Route: 048
     Dates: start: 20101111
  14. OLMESARTAN MEDOXOMIL [Concomitant]
     Indication: HYPERTENSION
     Dosage: 10 MG, 2X/DAY
     Route: 048
     Dates: start: 20101111
  15. LIPITOR [Concomitant]
     Indication: HYPERLIPIDAEMIA
     Dosage: 10 MG, 1X/DAY
     Route: 048
     Dates: start: 20101111, end: 20101201
  16. ACTOS [Concomitant]
     Indication: DIABETES MELLITUS
     Dosage: 15 MG, 2X/DAY
     Route: 048
     Dates: start: 20101111, end: 20101125
  17. LENDORMIN [Concomitant]
     Indication: INSOMNIA
     Dosage: 0.25 MG, 1X/DAY
     Route: 048
     Dates: start: 20101111

REACTIONS (3)
  - GENERALISED OEDEMA [None]
  - HEPATIC FUNCTION ABNORMAL [None]
  - PLEURAL EFFUSION [None]
